FAERS Safety Report 7769829-6 (Version None)
Quarter: 2011Q3

REPORT INFORMATION
  Report Type: 
  Country: None (occurrence: None)
  Receive Date: 20110922
  Receipt Date: 20110428
  Transmission Date: 20111222
  Serious: No
  Sender: FDA-Public Use
  Company Number: US-ASTRAZENECA-2011SE32195

PATIENT
  Sex: Female

DRUGS (3)
  1. TRAMADOL HCL [Concomitant]
  2. KLONOPIN [Concomitant]
  3. SEROQUEL [Suspect]
     Route: 048

REACTIONS (2)
  - INFLUENZA LIKE ILLNESS [None]
  - DRUG DOSE OMISSION [None]
